FAERS Safety Report 5082033-8 (Version None)
Quarter: 2006Q3

REPORT INFORMATION
  Report Type: 
  Country: None (occurrence: None)
  Receive Date: 20060817
  Receipt Date: 20060807
  Transmission Date: 20061208
  Serious: Yes (Other)
  Sender: FDA-Public Use
  Company Number: MA-BRISTOL-MYERS SQUIBB COMPANY-13467600

PATIENT
  Age: 3 Year
  Sex: Female

DRUGS (3)
  1. VINCRISTINE SULFATE [Suspect]
  2. ADRIAMYCIN [Suspect]
  3. DACTINOMYCIN [Suspect]

REACTIONS (1)
  - THYMUS ENLARGEMENT [None]
